FAERS Safety Report 21500118 (Version 2)
Quarter: 2022Q4

REPORT INFORMATION
  Report Type: Spontaneous
  Country: DE (occurrence: DE)
  Receive Date: 20221024
  Receipt Date: 20221107
  Transmission Date: 20230113
  Serious: Yes (Hospitalization)
  Sender: FDA-Public Use
  Company Number: DE-BoehringerIngelheim-2022-BI-198826

PATIENT
  Age: 45 Year
  Sex: Female

DRUGS (11)
  1. EMPAGLIFLOZIN [Suspect]
     Active Substance: EMPAGLIFLOZIN
     Indication: Cardiac failure
  2. Tacrolismus 4 mg [Concomitant]
     Indication: Product used for unknown indication
  3. Cellcept 1000 mg [Concomitant]
     Indication: Product used for unknown indication
  4. Prednisolon 10 mg [Concomitant]
     Indication: Product used for unknown indication
     Dosage: (REDUCTION ACCORDING TO SCHEDULE)
  5. BISOPROLOL [Concomitant]
     Active Substance: BISOPROLOL
     Indication: Product used for unknown indication
  6. SPIRONOLACTONE [Concomitant]
     Active Substance: SPIRONOLACTONE
     Indication: Product used for unknown indication
  7. CANDESARTAN [Concomitant]
     Active Substance: CANDESARTAN
     Indication: Product used for unknown indication
  8. Cotrimoxazol 960 mg [Concomitant]
     Indication: Product used for unknown indication
     Dosage: 1-0-0 (3X/WEEK; REEVALUATION IN 6-12 MONTHS)
  9. Amphotericin B Lutschtabl. [Concomitant]
     Indication: Product used for unknown indication
     Dosage: (UNTIL PREDNISOLONE IS UNDER 10 MG/DAY)
  10. PANTOPRAZOLE SODIUM [Concomitant]
     Active Substance: PANTOPRAZOLE SODIUM
     Indication: Product used for unknown indication
     Dosage: (AS LONG AS PREDNISOLONE THERAPY)
  11. Calcium/Vitamin D3 500 mg/400 E [Concomitant]
     Indication: Product used for unknown indication
     Dosage: (AS LONG AS PREDNISOLONE THERAPY)

REACTIONS (2)
  - Urogenital infection bacterial [Recovered/Resolved]
  - Genital herpes zoster [Unknown]

NARRATIVE: CASE EVENT DATE: 20220901
